FAERS Safety Report 18578045 (Version 1)
Quarter: 2020Q4

REPORT INFORMATION
  Report Type: Spontaneous
  Country: US (occurrence: US)
  Receive Date: 20201204
  Receipt Date: 20201204
  Transmission Date: 20210114
  Serious: Yes (Other)
  Sender: FDA-Public Use
  Company Number: US-LUPIN PHARMACEUTICALS INC.-2020-09947

PATIENT
  Sex: Female
  Weight: 3.54 kg

DRUGS (5)
  1. CEFAZOLINE [Suspect]
     Active Substance: CEFAZOLIN SODIUM
     Indication: SEPTIC ARTHRITIS STAPHYLOCOCCAL
  2. VANCOMYCIN HYDROCHLORIDE. [Suspect]
     Active Substance: VANCOMYCIN HYDROCHLORIDE
     Indication: EVIDENCE BASED TREATMENT
     Dosage: 1000 MILLIGRAM, BID
     Route: 064
     Dates: start: 2020, end: 2020
  3. CEFAZOLINE [Suspect]
     Active Substance: CEFAZOLIN SODIUM
     Indication: STAPHYLOCOCCAL BACTERAEMIA
     Dosage: 2 GRAM, TID,ON DISCHARGED, GIVEN THROUGH A PERIPHERALLY INSERTED CENTRAL CATHETER
     Route: 064
     Dates: start: 2020, end: 2020
  4. BUPRENORPHINE. [Suspect]
     Active Substance: BUPRENORPHINE
     Indication: DRUG WITHDRAWAL MAINTENANCE THERAPY
     Dosage: UNK
     Route: 064
  5. CEFEPIME [Suspect]
     Active Substance: CEFEPIME HYDROCHLORIDE
     Indication: EVIDENCE BASED TREATMENT
     Dosage: 2 GRAM, TID
     Route: 064
     Dates: start: 2020, end: 2020

REACTIONS (3)
  - Neonatal respiratory distress [Unknown]
  - Drug withdrawal syndrome neonatal [Unknown]
  - Foetal exposure during pregnancy [Unknown]
